FAERS Safety Report 17712497 (Version 2)
Quarter: 2020Q2

REPORT INFORMATION
  Report Type: Spontaneous
  Country: DE (occurrence: DE)
  Receive Date: 20200427
  Receipt Date: 20200507
  Transmission Date: 20200714
  Serious: Yes (Life-Threatening, Other)
  Sender: FDA-Public Use
  Company Number: DE-HIKMA PHARMACEUTICALS USA INC.-DE-H14001-20-01963

PATIENT
  Age: 15 Year
  Sex: Male

DRUGS (1)
  1. CEFUROXIME. [Suspect]
     Active Substance: CEFUROXIME
     Indication: COLITIS ULCERATIVE
     Route: 042

REACTIONS (5)
  - Aeromonas test positive [Unknown]
  - Escherichia test positive [Unknown]
  - Salmonella test positive [Unknown]
  - Pathogen resistance [Unknown]
  - Drug resistance [Unknown]
